FAERS Safety Report 6426912-5 (Version None)
Quarter: 2009Q4

REPORT INFORMATION
  Report Type: 
  Country: None (occurrence: None)
  Receive Date: 20091104
  Receipt Date: 20090724
  Transmission Date: 20100525
  Serious: No
  Sender: FDA-Public Use
  Company Number: US-BAYER-200916196BCC

PATIENT
  Sex: Male
  Weight: 113 kg

DRUGS (3)
  1. ALEVE [Suspect]
     Indication: ARTHRALGIA
     Dosage: UNIT DOSE: 220 MG
     Route: 048
     Dates: start: 20090701, end: 20090701
  2. ALEVE [Suspect]
     Dosage: UNIT DOSE: 220 MG
     Route: 048
     Dates: start: 20090701
  3. UNKNOWN MEDICATION [Concomitant]
     Indication: ARTHRALGIA
     Route: 065
     Dates: start: 20090701

REACTIONS (1)
  - NO ADVERSE EVENT [None]
